FAERS Safety Report 20664567 (Version 2)
Quarter: 2022Q2

REPORT INFORMATION
  Report Type: Spontaneous
  Country: DE (occurrence: US)
  Receive Date: 20220401
  Receipt Date: 20220411
  Transmission Date: 20220721
  Serious: Yes (Other)
  Sender: FDA-Public Use
  Company Number: DE-PFIZER INC-202200436885

PATIENT
  Age: 23 Year
  Sex: Female

DRUGS (1)
  1. TROMETHAMINE [Suspect]
     Active Substance: TROMETHAMINE
     Dosage: UNK

REACTIONS (1)
  - Anaphylactic reaction [Unknown]
